FAERS Safety Report 7020712-3 (Version None)
Quarter: 2010Q3

REPORT INFORMATION
  Report Type: 
  Country: None (occurrence: None)
  Receive Date: 20100929
  Receipt Date: 20100923
  Transmission Date: 20110219
  Serious: Yes (Hospitalization)
  Sender: FDA-Public Use
  Company Number: PHHY2010US55414

PATIENT
  Sex: Female

DRUGS (2)
  1. SANDOSTATIN LAR [Suspect]
     Indication: NEUROENDOCRINE TUMOUR
     Dosage: 20 MG, QMO
     Dates: start: 20100215, end: 20100723
  2. TUBE INSERTION [Concomitant]

REACTIONS (4)
  - AGEUSIA [None]
  - NAUSEA [None]
  - THROAT IRRITATION [None]
  - VOMITING [None]
